FAERS Safety Report 5814532-2 (Version None)
Quarter: 2008Q3

REPORT INFORMATION
  Report Type: 
  Country: None (occurrence: None)
  Receive Date: 20080718
  Receipt Date: 20070723
  Transmission Date: 20090109
  Serious: No
  Sender: FDA-Public Use
  Company Number: US-KINGPHARMUSA00001-K200700925

PATIENT

DRUGS (3)
  1. LEVOXYL [Suspect]
     Indication: HYPOTHYROIDISM
     Dosage: UNK, QD
     Route: 048
     Dates: end: 20060101
  2. LEVOXYL [Suspect]
     Dosage: 75 MCG, QD
     Route: 048
     Dates: start: 20060101, end: 20070721
  3. LEVOXYL [Suspect]
     Dosage: 75 MCG, BID
     Route: 048
     Dates: start: 20070722

REACTIONS (8)
  - BODY TEMPERATURE DECREASED [None]
  - FATIGUE [None]
  - HYPERHIDROSIS [None]
  - HYPERSOMNIA [None]
  - INFLUENZA [None]
  - RHINORRHOEA [None]
  - SINUS CONGESTION [None]
  - WEIGHT INCREASED [None]
